FAERS Safety Report 10971273 (Version 1)
Quarter: 2015Q1

REPORT INFORMATION
  Report Type: Spontaneous
  Country: US (occurrence: US)
  Receive Date: 20150331
  Receipt Date: 20150331
  Transmission Date: 20150721
  Serious: No
  Sender: FDA-Public Use
  Company Number: US-BAYER-2015-068355

PATIENT
  Age: 17 Year
  Sex: Female
  Weight: 49.89 kg

DRUGS (2)
  1. ALEVE [Suspect]
     Active Substance: NAPROXEN SODIUM
     Indication: DEPRESSION
     Dosage: 17 DF, UNK
     Route: 048
     Dates: start: 201503, end: 201503
  2. ALEVE [Suspect]
     Active Substance: NAPROXEN SODIUM
     Indication: EAR DISORDER
     Dosage: UNK
     Route: 048

REACTIONS (2)
  - Dizziness [Not Recovered/Not Resolved]
  - Extra dose administered [None]

NARRATIVE: CASE EVENT DATE: 201503
